FAERS Safety Report 5759355-8 (Version None)
Quarter: 2008Q2

REPORT INFORMATION
  Report Type: 
  Country: None (occurrence: None)
  Receive Date: 20080602
  Receipt Date: 20080514
  Transmission Date: 20081010
  Serious: Yes (Death)
  Sender: FDA-Public Use
  Company Number: S08-SWI-01801-01

PATIENT
  Sex: Male

DRUGS (4)
  1. ESCITALOPRAM [Suspect]
     Indication: DEPRESSION
     Dosage: 10 MG QD PO
     Route: 048
     Dates: start: 20080214, end: 20080215
  2. ESCITALOPRAM [Suspect]
     Indication: DEPRESSION
     Dosage: 15 MG QD PO
     Route: 048
     Dates: start: 20080216, end: 20080405
  3. DALMADORM (FLURAZEPAM) [Concomitant]
  4. LORAZEPAM [Concomitant]

REACTIONS (1)
  - COMPLETED SUICIDE [None]
